FAERS Safety Report 5901901-5 (Version None)
Quarter: 2008Q3

REPORT INFORMATION
  Report Type: 
  Country: None (occurrence: None)
  Receive Date: 20080925
  Receipt Date: 20080912
  Transmission Date: 20090109
  Serious: Yes (Hospitalization)
  Sender: FDA-Public Use
  Company Number: DSA_3248_2008

PATIENT
  Age: 29 Year
  Sex: Female

DRUGS (6)
  1. LORAZEPAM [Suspect]
     Dosage: (7 MG 1X ORAL)
     Route: 048
     Dates: start: 20080912, end: 20080912
  2. LAMICTAL [Suspect]
     Dosage: (100 MG 1X ORAL)
     Route: 048
     Dates: start: 20080912, end: 20080912
  3. NORTRIPTYLINE HYDROCHLORIDE [Suspect]
     Dosage: (75 MG 1X ORAL
     Route: 048
     Dates: start: 20080912, end: 20080912
  4. AMITRIPTYLINE HYDROCHLORIDE [Suspect]
     Dosage: (100 MG 1X ORAL)
     Route: 048
     Dates: start: 20080912, end: 20080912
  5. SEROQUEL [Suspect]
     Dosage: (175 MG 1X ORAL)
     Route: 048
     Dates: start: 20080912, end: 20080912
  6. PRAMIPEXOLE DIHYDROCHLORIDE [Suspect]
     Dosage: (1.26 MG 1X ORAL)
     Route: 048
     Dates: start: 20080912, end: 20080912

REACTIONS (5)
  - HYPOTENSION [None]
  - MULTIPLE DRUG OVERDOSE INTENTIONAL [None]
  - SOMNOLENCE [None]
  - SUICIDE ATTEMPT [None]
  - TACHYCARDIA [None]
